FAERS Safety Report 8901254 (Version 1)
Quarter: 2012Q4

REPORT INFORMATION
  Report Type: 
  Country: JP (occurrence: JP)
  Receive Date: 20121109
  Receipt Date: 20121109
  Transmission Date: 20130627
  Serious: Yes (Life-Threatening, Hospitalization, Other)
  Sender: FDA-Public Use
  Company Number: JP-AMGEN-JPNCT2012071767

PATIENT
  Age: 51 Year
  Sex: Male
  Weight: 82 kg

DRUGS (7)
  1. DARBEPOETIN ALFA [Suspect]
     Indication: NEPHROGENIC ANAEMIA
     Dosage: 20 mug, qd
     Route: 058
     Dates: start: 20101217
  2. ATELEC [Concomitant]
     Dosage: UNK
     Route: 048
  3. BAYASPIRIN [Concomitant]
     Dosage: UNK
     Route: 048
  4. DIOVAN [Concomitant]
     Dosage: UNK
     Route: 048
  5. ALFAROL [Concomitant]
     Dosage: UNK
     Route: 048
  6. JUSO [Concomitant]
     Dosage: UNK
     Route: 048
  7. CHARCOAL ACTIVATED [Concomitant]
     Dosage: UNK
     Route: 048

REACTIONS (4)
  - Subdural haematoma [Recovered/Resolved]
  - Subarachnoid haemorrhage [Recovered/Resolved]
  - Hypocalcaemia [Recovered/Resolved]
  - Blood creatine phosphokinase increased [Recovered/Resolved]
